FAERS Safety Report 7153087-X (Version None)
Quarter: 2010Q4

REPORT INFORMATION
  Report Type: 
  Country: None (occurrence: None)
  Receive Date: 20101213
  Receipt Date: 20101130
  Transmission Date: 20110411
  Serious: Yes (Hospitalization)
  Sender: FDA-Public Use
  Company Number: US-ALEXION-A201000111

PATIENT
  Sex: Female
  Weight: 58.96 kg

DRUGS (18)
  1. SOLIRIS [Suspect]
     Indication: PAROXYSMAL NOCTURNAL HAEMOGLOBINURIA
     Dosage: 600 MG, QW
     Route: 042
     Dates: start: 20090223
  2. SOLIRIS [Suspect]
     Dosage: 900 MG, Q2W
     Route: 042
     Dates: start: 20090427, end: 20100601
  3. LASIX [Concomitant]
     Dosage: 40 MG, QD
     Route: 048
  4. SYNTHROID [Concomitant]
     Dosage: 25 UG, QD
     Route: 048
  5. LIPITOR [Concomitant]
     Dosage: 40 MG, QD
     Route: 048
  6. PRILOSEC [Concomitant]
     Dosage: 40 MG, BID
     Route: 048
  7. COLACE [Concomitant]
     Dosage: 100 MG, BID
     Route: 048
  8. K-DUR [Concomitant]
     Dosage: 20 MEQ, QD
     Route: 048
  9. REGLAN [Concomitant]
     Dosage: UNK
     Route: 048
  10. -- [Concomitant]
     Dosage: 1 MG, QD
  11. -- [Concomitant]
     Dosage: 300 MG, TID
  12. HYDROCHLOROTHIAZIDE [Concomitant]
     Dosage: 50 MG TWICE A WEEK
  13. DIGOXIN [Concomitant]
     Dosage: 0.125 MG TWICE A WEEK
  14. NEXIUM [Concomitant]
     Dosage: 40 MG, BID
  15. CARDIZEM [Concomitant]
     Dosage: 90 MG, TID
  16. DEMADEX [Concomitant]
     Dosage: 20 MG, QID
  17. PREDNISONE [Concomitant]
     Dosage: 20 MG, QD
  18. METOPROLOL [Concomitant]
     Dosage: 100 MG, QD

REACTIONS (3)
  - CARDIAC FAILURE CONGESTIVE [None]
  - NASOPHARYNGITIS [None]
  - RENAL DISORDER [None]
